FAERS Safety Report 7768685-X (Version None)
Quarter: 2011Q3

REPORT INFORMATION
  Report Type: 
  Country: None (occurrence: None)
  Receive Date: 20110922
  Receipt Date: 20110505
  Transmission Date: 20111222
  Serious: No
  Sender: FDA-Public Use
  Company Number: US-ASTRAZENECA-2011SE27127

PATIENT
  Age: 24 Year
  Sex: Female
  Weight: 124.7 kg

DRUGS (8)
  1. SEROQUEL XR [Suspect]
     Indication: ANXIETY
     Route: 048
     Dates: start: 20100801
  2. SEROQUEL XR [Suspect]
     Route: 048
  3. SEROQUEL XR [Suspect]
     Indication: DEPRESSION
     Route: 048
     Dates: start: 20100801
  4. SEROQUEL XR [Suspect]
     Indication: POST-TRAUMATIC STRESS DISORDER
     Route: 048
     Dates: start: 20100801
  5. SEROQUEL XR [Suspect]
     Route: 048
  6. SEROQUEL XR [Suspect]
     Route: 048
  7. SEROQUEL XR [Suspect]
     Indication: BORDERLINE PERSONALITY DISORDER
     Route: 048
     Dates: start: 20100801
  8. SEROQUEL XR [Suspect]
     Route: 048

REACTIONS (5)
  - WITHDRAWAL SYNDROME [None]
  - ADVERSE EVENT [None]
  - FATIGUE [None]
  - MIGRAINE [None]
  - DRUG DOSE OMISSION [None]
